FAERS Safety Report 8119394-9 (Version None)
Quarter: 2012Q1

REPORT INFORMATION
  Report Type: 
  Country: None (occurrence: None)
  Receive Date: 20120207
  Receipt Date: 20120202
  Transmission Date: 20120608
  Serious: Yes (Death, Hospitalization)
  Sender: FDA-Public Use
  Company Number: BR-ELI_LILLY_AND_COMPANY-BR201109005353

PATIENT
  Sex: Female
  Weight: 46.4 kg

DRUGS (6)
  1. VITAMIN B-12 [Concomitant]
     Indication: SUPPLEMENTATION THERAPY
     Dosage: 1000 IU, UNKNOWN
     Dates: start: 20110628, end: 20110628
  2. FOLIC ACID [Concomitant]
     Indication: SUPPLEMENTATION THERAPY
     Dosage: 350 UG, QD
     Dates: start: 20110628
  3. ENOXAPARINA [Concomitant]
     Indication: PULMONARY ARTERY THROMBOSIS
     Dosage: 60 MG, QD
     Route: 065
     Dates: start: 20110624
  4. DEXAMETHASONE [Concomitant]
     Indication: SUPPLEMENTATION THERAPY
     Dosage: 8 MG, UNK
     Dates: start: 20110822, end: 20110824
  5. CODEINA [Concomitant]
     Indication: COUGH
     Dosage: UNK, EVERY 4 HRS
     Route: 065
     Dates: start: 20110401
  6. PEMETREXED [Suspect]
     Indication: LUNG NEOPLASM MALIGNANT
     Dosage: 710 MG, OTHER
     Route: 042
     Dates: start: 20110712, end: 20110921

REACTIONS (1)
  - DYSPNOEA [None]
